FAERS Safety Report 20686480 (Version 9)
Quarter: 2022Q4

REPORT INFORMATION
  Report Type: Report from Study
  Country: JP (occurrence: None)
  Receive Date: 20220407
  Receipt Date: 20221013
  Transmission Date: 20230112
  Serious: Yes (Hospitalization)
  Sender: FDA-Public Use
  Company Number: JP-ROCHE-3066804

PATIENT
  Age: 68 Year
  Sex: Male
  Weight: 66.1 kg

DRUGS (7)
  1. TRASTUZUMAB [Suspect]
     Active Substance: TRASTUZUMAB
     Indication: Bile duct cancer
     Route: 041
     Dates: start: 20220221
  2. TRASTUZUMAB [Suspect]
     Active Substance: TRASTUZUMAB
     Route: 041
     Dates: start: 20220221, end: 20220221
  3. TRASTUZUMAB [Suspect]
     Active Substance: TRASTUZUMAB
     Route: 041
     Dates: start: 20220221, end: 20220221
  4. TUCATINIB [Suspect]
     Active Substance: TUCATINIB
     Indication: Bile duct cancer
     Dosage: ON 27/MAR/2022, RECEIVED LAST DOSE PRIOR TO AE
     Route: 048
     Dates: start: 20220221, end: 20220329
  5. ESOMEPRAZOLE MAGNESIUM [Concomitant]
     Active Substance: ESOMEPRAZOLE MAGNESIUM
     Dates: start: 202001
  6. PANCRELIPASE [Concomitant]
     Active Substance: PANCRELIPASE
     Dates: start: 202001
  7. TAMSULOSIN HYDROCHLORIDE [Concomitant]
     Active Substance: TAMSULOSIN HYDROCHLORIDE
     Dates: start: 2019

REACTIONS (1)
  - Liver disorder [Recovered/Resolved]

NARRATIVE: CASE EVENT DATE: 20220328
